FAERS Safety Report 7646008-4 (Version None)
Quarter: 2011Q3

REPORT INFORMATION
  Report Type: 
  Country: None (occurrence: None)
  Receive Date: 20110731
  Receipt Date: 20110714
  Transmission Date: 20111222
  Serious: No
  Sender: FDA-Public Use
  Company Number: US-ROXANE LABORATORIES, INC.-2011-RO-01034RO

PATIENT
  Age: 23 Year
  Sex: Female

DRUGS (2)
  1. PREDNISONE TAB [Suspect]
     Indication: ADRENAL DISORDER
     Dosage: 10 MG
     Route: 048
  2. FLUDROCORTISONE ACETATE [Concomitant]
     Indication: ADRENAL DISORDER
     Dosage: 0.1 MG
     Route: 048

REACTIONS (1)
  - THROAT IRRITATION [None]
